FAERS Safety Report 15440170 (Version 1)
Quarter: 2018Q3

REPORT INFORMATION
  Report Type: Spontaneous
  Country: US (occurrence: US)
  Receive Date: 20180925
  Receipt Date: 20180925
  Transmission Date: 20181010
  Serious: No
  Sender: FDA-Public Use
  Company Number: None

PATIENT
  Age: 74 Year
  Sex: Female

DRUGS (2)
  1. JANTOVEN [Suspect]
     Active Substance: WARFARIN SODIUM
     Route: 048
     Dates: start: 20180219, end: 20180925
  2. JANTOVEN [Suspect]
     Active Substance: WARFARIN SODIUM
     Route: 048
     Dates: start: 20180817, end: 20180925

REACTIONS (3)
  - Mouth swelling [None]
  - Product substitution issue [None]
  - Hair texture abnormal [None]

NARRATIVE: CASE EVENT DATE: 20180817
